FAERS Safety Report 24703559 (Version 1)
Quarter: 2024Q4

REPORT INFORMATION
  Report Type: Spontaneous
  Country: US (occurrence: US)
  Receive Date: 20241206
  Receipt Date: 20241206
  Transmission Date: 20250115
  Serious: No
  Sender: TENSHI KAIZEN PRIVATE LIMITED
  Company Number: US-TENSHI KAIZEN PRIVATE LIMITED-2024TK000077

PATIENT
  Age: 75 Year
  Sex: Female
  Weight: 68 kg

DRUGS (1)
  1. LORATADINE [Suspect]
     Active Substance: LORATADINE
     Indication: Product used for unknown indication
     Dosage: 1/2 TABLET (TABLET CUT IN HALF) EACH EVENING
     Route: 048
     Dates: start: 20240821, end: 20240822

REACTIONS (2)
  - Wrong technique in product usage process [Unknown]
  - Incorrect dose administered [Unknown]

NARRATIVE: CASE EVENT DATE: 20240821
